FAERS Safety Report 21189399 (Version 1)
Quarter: 2022Q3

REPORT INFORMATION
  Report Type: Spontaneous
  Country: FR (occurrence: FR)
  Receive Date: 20220809
  Receipt Date: 20220809
  Transmission Date: 20221026
  Serious: Yes (Death)
  Sender: FDA-Public Use
  Company Number: None

PATIENT
  Age: 86 Year
  Sex: Male
  Weight: 67 kg

DRUGS (8)
  1. AMIODARONE [Suspect]
     Active Substance: AMIODARONE
     Indication: Atrial fibrillation
     Dosage: UNIT DOSE : 200 MG , FREQUENCY TIME : 24 HOURS
     Dates: start: 20211209
  2. ROCEPHIN [Suspect]
     Active Substance: CEFTRIAXONE SODIUM
     Indication: Respiratory tract infection
     Dosage: FORM STRENGTH : 1 G, UNIT DOSE : 1000 MG , FREQUENCY TIME : 24 HOURS
     Dates: start: 20211206
  3. ELIQUIS [Suspect]
     Active Substance: APIXABAN
     Indication: Atrial fibrillation
     Dosage: FORM STRENGTH : 5 MG  , UNIT DOSE : 5 MG , FREQUENCY TIME : 12 HOURS
     Dates: start: 20211209
  4. CEFOTAXIME SODIUM [Suspect]
     Active Substance: CEFOTAXIME SODIUM
     Indication: Respiratory tract infection
     Dosage: UNIT DOSE : 1000 MG  , FREQUENCY TIME : 8 HOURS
     Dates: start: 20211210
  5. METHYLPREDNISOLONE [Concomitant]
     Active Substance: METHYLPREDNISOLONE
     Indication: Product used for unknown indication
  6. TAMSULOSIN HYDROCHLORIDE [Concomitant]
     Active Substance: TAMSULOSIN HYDROCHLORIDE
     Indication: Product used for unknown indication
     Dosage: CHLORHYDRATE DE TAMSULOSINE
  7. RABEPRAZOLE SODIUM [Concomitant]
     Active Substance: RABEPRAZOLE SODIUM
     Indication: Product used for unknown indication
     Dosage: FORM STRENGTH : 10 MG
  8. AMOXICILLIN [Concomitant]
     Active Substance: AMOXICILLIN
     Indication: Respiratory tract infection
     Dosage: AMOXICILLINE , DURATION : 3 DAYS
     Dates: start: 20211130, end: 20211203

REACTIONS (1)
  - Hepatitis fulminant [Fatal]

NARRATIVE: CASE EVENT DATE: 20211210
